APPROVED DRUG PRODUCT: LATANOPROST
Active Ingredient: LATANOPROST
Strength: 0.005%
Dosage Form/Route: SOLUTION/DROPS;OPHTHALMIC
Application: A090887 | Product #001
Applicant: EPIC PHARMA LLC
Approved: Jul 19, 2011 | RLD: No | RS: No | Type: DISCN